FAERS Safety Report 25640519 (Version 1)
Quarter: 2025Q3

REPORT INFORMATION
  Report Type: Spontaneous
  Country: US (occurrence: None)
  Receive Date: 20250801
  Receipt Date: 20250801
  Transmission Date: 20251021
  Serious: Yes (Hospitalization)
  Sender: FDA-CTU
  Company Number: None

PATIENT
  Age: 64 Year
  Sex: Female

DRUGS (19)
  1. VELTASSA [Suspect]
     Active Substance: PATIROMER
     Indication: Hyperkalaemia
     Route: 048
     Dates: start: 20231107
  2. FARXIGA [Concomitant]
     Active Substance: DAPAGLIFLOZIN PROPANEDIOL
  3. ASPIRIN [Concomitant]
     Active Substance: ASPIRIN
  4. LIPITOR [Concomitant]
     Active Substance: ATORVASTATIN CALCIUM
  5. CARVEDILOL [Concomitant]
     Active Substance: CARVEDILOL
  6. ISOSORBIDE MONONITRATE [Concomitant]
     Active Substance: ISOSORBIDE MONONITRATE
  7. ALLOPURINOL [Concomitant]
     Active Substance: ALLOPURINOL
  8. CALCITRIOL [Concomitant]
     Active Substance: CALCITRIOL
  9. CITALOPRAM [Concomitant]
     Active Substance: CITALOPRAM
  10. COLCHICINE [Concomitant]
     Active Substance: COLCHICINE
  11. HUMALOG [Concomitant]
     Active Substance: INSULIN LISPRO
  12. FLONASE [Concomitant]
     Active Substance: FLUTICASONE PROPIONATE
  13. FOLIC ACID [Concomitant]
     Active Substance: FOLIC ACID
  14. LORATADINE [Concomitant]
     Active Substance: LORATADINE
  15. SINGULAIR [Concomitant]
     Active Substance: MONTELUKAST SODIUM
  16. PANTOPRAZOLE [Concomitant]
     Active Substance: PANTOPRAZOLE
  17. ANORO ELLIPTA [Concomitant]
     Active Substance: UMECLIDINIUM BROMIDE\VILANTEROL TRIFENATATE
  18. LOSARTAN [Concomitant]
     Active Substance: LOSARTAN
  19. TYLENOL [Concomitant]
     Active Substance: ACETAMINOPHEN

REACTIONS (3)
  - Blood potassium decreased [None]
  - Blood sodium decreased [None]
  - Bronchitis [None]

NARRATIVE: CASE EVENT DATE: 20250701
